FAERS Safety Report 11892109 (Version 4)
Quarter: 2016Q1

REPORT INFORMATION
  Report Type: Report from Study
  Country: US (occurrence: US)
  Receive Date: 20160106
  Receipt Date: 20160311
  Transmission Date: 20160526
  Serious: No
  Sender: FDA-Public Use
  Company Number: PHEH2016US000502

PATIENT
  Sex: Male

DRUGS (1)
  1. GILENYA [Suspect]
     Active Substance: FINGOLIMOD HYDROCHLORIDE
     Indication: MULTIPLE SCLEROSIS
     Dosage: 0.5 MG, QD
     Route: 048

REACTIONS (7)
  - Condition aggravated [Unknown]
  - Musculoskeletal discomfort [Unknown]
  - Connective tissue disorder [Unknown]
  - Memory impairment [Unknown]
  - Dysstasia [Unknown]
  - Drug ineffective [Unknown]
  - Hypoaesthesia [Unknown]
